FAERS Safety Report 23238064 (Version 1)
Quarter: 2023Q4

REPORT INFORMATION
  Report Type: Report from Study
  Country: US (occurrence: US)
  Receive Date: 20231129
  Receipt Date: 20231129
  Transmission Date: 20240110
  Serious: Yes (Hospitalization, Other)
  Sender: FDA-Public Use
  Company Number: US-ABBVIE-5510587

PATIENT
  Age: 67 Year
  Sex: Female

DRUGS (2)
  1. CREON [Suspect]
     Active Substance: PANCRELIPASE AMYLASE\PANCRELIPASE LIPASE\PANCRELIPASE PROTEASE
     Indication: Pancreatitis
     Dosage: FORM STRENGTH: 36000 UNIT?FREQUENCY TEXT: 2 CAPS W/ MEAL AND 2 CAPS W/ SNACK
     Route: 048
  2. ASPIRIN [Suspect]
     Active Substance: ASPIRIN
     Indication: Product used for unknown indication
     Dosage: START DATE TEXT: 18 YEARS AGO
     Route: 065
     Dates: start: 2005

REACTIONS (7)
  - Gastric ulcer [Recovering/Resolving]
  - Vomiting [Recovered/Resolved]
  - Gastric perforation [Recovering/Resolving]
  - Hypophagia [Recovered/Resolved]
  - Drug interaction [Not Recovered/Not Resolved]
  - Dysstasia [Recovered/Resolved]
  - Fluid intake reduced [Recovered/Resolved]

NARRATIVE: CASE EVENT DATE: 20231101
